FAERS Safety Report 8318788-6 (Version None)
Quarter: 2012Q2

REPORT INFORMATION
  Report Type: 
  Country: None (occurrence: None)
  Receive Date: 20120426
  Receipt Date: 20120426
  Transmission Date: 20120825
  Serious: Yes (Other)
  Sender: FDA-Public Use
  Company Number: None

PATIENT
  Sex: Female
  Weight: 58.0604 kg

DRUGS (1)
  1. TRANSDERM SCOP [Suspect]
     Indication: NAUSEA
     Dosage: 1 PATCH ONCE TRANSDERM
     Route: 062
     Dates: start: 20120315

REACTIONS (2)
  - ANAESTHETIC COMPLICATION [None]
  - HALLUCINATION [None]
